FAERS Safety Report 6828596-0 (Version None)
Quarter: 2010Q3

REPORT INFORMATION
  Report Type: 
  Country: None (occurrence: None)
  Receive Date: 20100702
  Receipt Date: 20100617
  Transmission Date: 20110219
  Serious: Yes (Hospitalization)
  Sender: FDA-Public Use
  Company Number: 003754

PATIENT
  Sex: Female

DRUGS (8)
  1. KEPPRA [Suspect]
     Indication: EPILEPSY
     Dosage: (500 MG TID ORAL), (500 MG BID)
     Route: 048
     Dates: start: 20081201, end: 20091201
  2. KEPPRA [Suspect]
     Indication: EPILEPSY
     Dosage: (500 MG TID ORAL), (500 MG BID)
     Route: 048
     Dates: start: 20100310
  3. SYNTHROID [Concomitant]
  4. PLAVIX [Concomitant]
  5. LIPITOR [Concomitant]
  6. ASPIRIN [Concomitant]
  7. METOPROLOL [Concomitant]
  8. LISINOPRIL [Concomitant]

REACTIONS (5)
  - BLOOD CREATININE INCREASED [None]
  - MYOCARDIAL INFARCTION [None]
  - PAIN OF SKIN [None]
  - PRODUCT SUBSTITUTION ISSUE [None]
  - RENAL DISORDER [None]
